FAERS Safety Report 9830765 (Version 4)
Quarter: 2014Q1

REPORT INFORMATION
  Report Type: Report from Study
  Country: FR (occurrence: FR)
  Receive Date: 20140120
  Receipt Date: 20140324
  Transmission Date: 20141002
  Serious: Yes (Hospitalization)
  Sender: FDA-Public Use
  Company Number: FR-SA-2014SA005272

PATIENT
  Age: 76 Year
  Sex: Male

DRUGS (15)
  1. AFLIBERCEPT [Suspect]
     Indication: COLORECTAL CANCER METASTATIC
     Route: 041
     Dates: start: 20131002, end: 20131002
  2. AFLIBERCEPT [Suspect]
     Indication: COLORECTAL CANCER METASTATIC
     Route: 041
     Dates: start: 20131211, end: 20131211
  3. 5 FU [Suspect]
     Indication: COLORECTAL CANCER METASTATIC
     Route: 040
     Dates: start: 20131002, end: 20131002
  4. 5 FU [Suspect]
     Indication: COLORECTAL CANCER METASTATIC
     Route: 040
     Dates: start: 20131211, end: 20131211
  5. 5 FU [Suspect]
     Indication: COLORECTAL CANCER METASTATIC
     Route: 042
     Dates: start: 20131002, end: 20131002
  6. 5 FU [Suspect]
     Indication: COLORECTAL CANCER METASTATIC
     Route: 042
     Dates: start: 20131211, end: 20131211
  7. IRINOTECAN [Suspect]
     Indication: COLORECTAL CANCER METASTATIC
     Route: 041
     Dates: start: 20131002, end: 20131002
  8. IRINOTECAN [Suspect]
     Indication: COLORECTAL CANCER METASTATIC
     Route: 041
     Dates: start: 20131211, end: 20131211
  9. LEUCOVORIN [Suspect]
     Indication: COLORECTAL CANCER METASTATIC
     Route: 041
     Dates: start: 20131002, end: 20131002
  10. LEUCOVORIN [Suspect]
     Indication: COLORECTAL CANCER METASTATIC
     Route: 041
     Dates: start: 20131211, end: 20131211
  11. HEPARIN [Concomitant]
     Indication: PROPHYLAXIS
     Dates: start: 201212
  12. LOPERAMIDE [Concomitant]
     Indication: PROPHYLAXIS
     Dates: start: 20131119
  13. LOPERAMIDE [Concomitant]
     Indication: PROPHYLAXIS
     Dates: start: 20131025, end: 20131027
  14. LOPERAMIDE [Concomitant]
     Indication: PROPHYLAXIS
     Dates: start: 20131108, end: 20131110
  15. SMECTA [Concomitant]
     Dates: start: 20131201

REACTIONS (1)
  - Epistaxis [Recovered/Resolved]
